FAERS Safety Report 5690744-6 (Version None)
Quarter: 2008Q2

REPORT INFORMATION
  Report Type: 
  Country: None (occurrence: None)
  Receive Date: 20080401
  Receipt Date: 20080320
  Transmission Date: 20081010
  Serious: Yes (Other)
  Sender: FDA-Public Use
  Company Number: US-ELI_LILLY_AND_COMPANY-US200802003634

PATIENT
  Age: 47 Year
  Sex: Male

DRUGS (7)
  1. CYMBALTA [Suspect]
     Indication: DEPRESSION
     Dosage: 60 MG, UNK
     Dates: start: 20080206
  2. PERCOCET [Concomitant]
     Indication: PAIN
     Dosage: 15 MG EVERY 3 HOURS AS NEEDED
     Route: 048
  3. HUMALOG [Concomitant]
     Dosage: UNK, UNK
     Route: 050
     Dates: start: 20060101
  4. AMBIEN [Concomitant]
     Indication: SLEEP DISORDER
     Dosage: 10 MG, EACH EVENING AS NEEDED
  5. BENADRYL [Concomitant]
     Dosage: UNK, AS NEEDED
  6. LIPRAM [Concomitant]
     Indication: PANCREATIC DISORDER
  7. TEMAZEPAM [Concomitant]
     Dosage: 30 MG, EACH EVENING

REACTIONS (1)
  - BLOOD GLUCOSE DECREASED [None]
